FAERS Safety Report 18330554 (Version 1)
Quarter: 2020Q3

REPORT INFORMATION
  Report Type: Spontaneous
  Country: NL (occurrence: NL)
  Receive Date: 20200930
  Receipt Date: 20200930
  Transmission Date: 20201103
  Serious: Yes (Life-Threatening)
  Sender: FDA-Public Use
  Company Number: NL-BIOVITRUM-2020NL5104

PATIENT
  Age: 9 Week
  Sex: Female
  Weight: 2 kg

DRUGS (3)
  1. SYNAGIS [Suspect]
     Active Substance: PALIVIZUMAB
     Indication: PREMATURE BABY
     Dosage: INJECTION SOLUTION, 100 MG / ML (MILLIGRAMS PER MILLILITER)?100 DOSAGE FORMS
     Route: 050
     Dates: start: 20200911
  2. FERROFUMARAAT [Concomitant]
     Active Substance: FERROUS FUMARATE
     Indication: PRODUCT USED FOR UNKNOWN INDICATION
     Dosage: 20 DOSAGE FORM S?SUSPENSION, 20 MG / ML (MILLIGRAMS PER MILLILITER)
     Route: 048
  3. COLECALCIFEROL [Concomitant]
     Active Substance: CHOLECALCIFEROL
     Indication: PRODUCT USED FOR UNKNOWN INDICATION

REACTIONS (2)
  - Cyanosis [Recovered/Resolved]
  - Apnoea [Recovered/Resolved]

NARRATIVE: CASE EVENT DATE: 20200911
